FAERS Safety Report 7387729-0 (Version None)
Quarter: 2011Q1

REPORT INFORMATION
  Report Type: 
  Country: None (occurrence: None)
  Receive Date: 20110331
  Receipt Date: 20110325
  Transmission Date: 20110831
  Serious: Yes (Death)
  Sender: FDA-Public Use
  Company Number: ES-GENZYME-FLUD-1000967

PATIENT

DRUGS (3)
  1. FLUDARA [Suspect]
     Indication: B-CELL LYMPHOMA
     Dosage: 25 MG/M2, QD X 3 DAYS
     Route: 065
  2. RITUXIMAB [Suspect]
     Indication: B-CELL LYMPHOMA
     Dosage: 375 MG/M2, QD, DAY 1
     Route: 065
  3. CYCLOPHOSPHAMIDE [Suspect]
     Indication: B-CELL LYMPHOMA
     Dosage: 1 G/M2, QD, DAY 1
     Route: 065

REACTIONS (1)
  - NEOPLASM MALIGNANT [None]
